FAERS Safety Report 6235761-2 (Version None)
Quarter: 2009Q2

REPORT INFORMATION
  Report Type: 
  Country: None (occurrence: None)
  Receive Date: 20090619
  Receipt Date: 20090605
  Transmission Date: 20091009
  Serious: Yes (Other)
  Sender: FDA-Public Use
  Company Number: JP-RANBAXY-2009RR-24844

PATIENT
  Age: 73 Year
  Sex: Male

DRUGS (1)
  1. FENOFIBRATE [Suspect]
     Indication: HYPERLIPIDAEMIA
     Dosage: 134 MG, QD
     Route: 048
     Dates: start: 20080603, end: 20080916

REACTIONS (1)
  - LIVER FUNCTION TEST ABNORMAL [None]
